FAERS Safety Report 12775115 (Version 1)
Quarter: 2016Q3

REPORT INFORMATION
  Report Type: Spontaneous
  Country: US (occurrence: US)
  Receive Date: 20160921
  Receipt Date: 20160921
  Transmission Date: 20161109
  Serious: Yes (Hospitalization)
  Sender: FDA-Public Use
  Company Number: None

PATIENT
  Age: 60 Year
  Sex: Female
  Weight: 75.93 kg

DRUGS (17)
  1. MINOCYCLINE [Concomitant]
     Active Substance: MINOCYCLINE\MINOCYCLINE HYDROCHLORIDE
  2. TRIAMCINOLONE [Concomitant]
     Active Substance: TRIAMCINOLONE
  3. CETUXIMAB [Suspect]
     Active Substance: CETUXIMAB
     Indication: SQUAMOUS CELL CARCINOMA OF HEAD AND NECK
     Dosage: CETUXIMAB 250 MG/M2 INTRAVENOUS
     Route: 042
  4. LISINOPRIL. [Concomitant]
     Active Substance: LISINOPRIL
  5. TEMAZEPAM. [Concomitant]
     Active Substance: TEMAZEPAM
  6. FAMOTIDINE. [Concomitant]
     Active Substance: FAMOTIDINE
  7. MAGNESIUM [Concomitant]
     Active Substance: MAGNESIUM
  8. PALBOCICLIB [Suspect]
     Active Substance: PALBOCICLIB
     Indication: SQUAMOUS CELL CARCINOMA OF HEAD AND NECK
     Dosage: PALBOCICLIB 125MG PO QD DL-21/28
     Route: 048
  9. CYMBALTA [Concomitant]
     Active Substance: DULOXETINE HYDROCHLORIDE
  10. POTASSIUM CHLORIDE. [Concomitant]
     Active Substance: POTASSIUM CHLORIDE
  11. AUGMENTIN [Concomitant]
     Active Substance: AMOXICILLIN\CLAVULANATE POTASSIUM
  12. XANAX [Concomitant]
     Active Substance: ALPRAZOLAM
  13. PROCHLORPERAZINE. [Concomitant]
     Active Substance: PROCHLORPERAZINE
  14. BENZONATATE. [Concomitant]
     Active Substance: BENZONATATE
  15. COMPAZINE [Concomitant]
     Active Substance: PROCHLORPERAZINE MALEATE
  16. OXYCODONE [Concomitant]
     Active Substance: OXYCODONE
  17. PREDNISONE. [Concomitant]
     Active Substance: PREDNISONE

REACTIONS (10)
  - Mental status changes [None]
  - Oral infection [None]
  - Productive cough [None]
  - Vomiting [None]
  - Dyspnoea [None]
  - Nausea [None]
  - Headache [None]
  - Pneumonia [None]
  - Pyrexia [None]
  - Blood magnesium decreased [None]

NARRATIVE: CASE EVENT DATE: 20160918
